FAERS Safety Report 15566624 (Version 1)
Quarter: 2018Q4

REPORT INFORMATION
  Report Type: Spontaneous
  Country: GB (occurrence: GB)
  Receive Date: 20181030
  Receipt Date: 20181030
  Transmission Date: 20190205
  Serious: Yes (Other)
  Sender: FDA-Public Use
  Company Number: GB-TEVA-2018-GB-969229

PATIENT
  Age: 29 Year
  Sex: Female
  Weight: 59 kg

DRUGS (4)
  1. METOCLOPRAMIDE. [Suspect]
     Active Substance: METOCLOPRAMIDE
     Dosage: 10 MG
     Route: 065
     Dates: start: 20180928
  2. CLOTRIMAZOLE. [Concomitant]
     Active Substance: CLOTRIMAZOLE
     Dosage: USE AT NIGHT.
     Route: 065
     Dates: start: 20180819, end: 20180826
  3. CLOTRIMAZOLE. [Concomitant]
     Active Substance: CLOTRIMAZOLE
     Dosage: APPLY CREAM 2-3 TIMES A DAY.
     Route: 065
     Dates: start: 20180819, end: 20180826
  4. CLOBETASONE BUTYRATE [Concomitant]
     Active Substance: CLOBETASONE BUTYRATE
     Dosage: 1 DOSAGE FORMS DAILY; APPLY, THINLY 30 MINUTES AFTER EMOLLIENT
     Route: 065
     Dates: start: 20180819, end: 20180902

REACTIONS (1)
  - Syncope [Not Recovered/Not Resolved]

NARRATIVE: CASE EVENT DATE: 20180928
